FAERS Safety Report 21481459 (Version 1)
Quarter: 2022Q4

REPORT INFORMATION
  Report Type: Spontaneous
  Country: RU (occurrence: RU)
  Receive Date: 20221019
  Receipt Date: 20221019
  Transmission Date: 20230113
  Serious: Yes (Hospitalization)
  Sender: FDA-Public Use
  Company Number: RU-ALXN-A202212784

PATIENT
  Age: 10 Year
  Sex: Male
  Weight: 25 kg

DRUGS (2)
  1. KANUMA [Suspect]
     Active Substance: SEBELIPASE ALFA
     Indication: Lysosomal acid lipase deficiency
     Dosage: 1 MG/KG, Q2W
     Route: 042
     Dates: start: 20141028
  2. KANUMA [Suspect]
     Active Substance: SEBELIPASE ALFA
     Dosage: 40 MG, FOR 2 HOURS
     Route: 041

REACTIONS (1)
  - Hepatomegaly [Unknown]
